FAERS Safety Report 25606230 (Version 2)
Quarter: 2025Q3

REPORT INFORMATION
  Report Type: Report from Study
  Country: US (occurrence: US)
  Receive Date: 20250725
  Receipt Date: 20250827
  Transmission Date: 20251020
  Serious: Yes (Hospitalization, Other)
  Sender: ABBVIE
  Company Number: US-ABBVIE-6378814

PATIENT
  Age: 69 Year
  Sex: Female
  Weight: 41.73 kg

DRUGS (6)
  1. SKYRIZI [Suspect]
     Active Substance: RISANKIZUMAB-RZAA
     Indication: Psoriasis
     Dosage: LAST ADMIN DATE-2025 FORM STRENGTH: 150 MILLIGRAM, SOLUTION FOR INJECTION IN PRE-FILLED PEN
     Route: 058
     Dates: start: 20250818
  2. SKYRIZI [Suspect]
     Active Substance: RISANKIZUMAB-RZAA
     Indication: Psoriatic arthropathy
     Dosage: FORM STRENGTH: 150 MILLIGRAM, SOLUTION FOR INJECTION IN PRE-FILLED PEN
     Route: 058
     Dates: start: 2023, end: 202503
  3. SKYRIZI [Suspect]
     Active Substance: RISANKIZUMAB-RZAA
     Route: 058
     Dates: start: 20250430
  4. LEXAPRO [Concomitant]
     Active Substance: ESCITALOPRAM OXALATE
     Indication: Depression
  5. CELEBREX [Concomitant]
     Active Substance: CELECOXIB
     Indication: Psoriatic arthropathy
  6. PREVACID [Concomitant]
     Active Substance: LANSOPRAZOLE
     Indication: Epigastric discomfort

REACTIONS (4)
  - Uterine leiomyoma [Recovered/Resolved]
  - Rash erythematous [Recovering/Resolving]
  - Psoriasis [Recovering/Resolving]
  - Ovarian Sertoli-Leydig cell tumour [Recovered/Resolved]

NARRATIVE: CASE EVENT DATE: 20250412
